FAERS Safety Report 11169647 (Version 1)
Quarter: 2015Q2

REPORT INFORMATION
  Report Type: Spontaneous
  Country: JP (occurrence: JP)
  Receive Date: 20150605
  Receipt Date: 20150605
  Transmission Date: 20150821
  Serious: Yes (Death, Other)
  Sender: FDA-Public Use
  Company Number: PHHY2015JP065639

PATIENT
  Age: 36 Year
  Sex: Male

DRUGS (1)
  1. METRONIDAZOLE. [Suspect]
     Active Substance: METRONIDAZOLE
     Indication: BACTERIAL INFECTION
     Dosage: 2 G, QD
     Route: 048

REACTIONS (8)
  - Myoclonus [Recovered/Resolved]
  - Encephalopathy [Fatal]
  - Dysarthria [Unknown]
  - Gait disturbance [Unknown]
  - Vertigo [Unknown]
  - Dizziness [Unknown]
  - Condition aggravated [Fatal]
  - Depressed level of consciousness [Recovering/Resolving]
